FAERS Safety Report 6010947-0 (Version None)
Quarter: 2008Q4

REPORT INFORMATION
  Report Type: 
  Country: None (occurrence: None)
  Receive Date: 20081218
  Receipt Date: 20081212
  Transmission Date: 20090506
  Serious: Yes (Hospitalization)
  Sender: FDA-Public Use
  Company Number: A0760179A

PATIENT
  Age: 78 Year
  Sex: Male

DRUGS (2)
  1. ADVAIR DISKUS 500/50 [Suspect]
     Indication: STATUS ASTHMATICUS
     Dosage: 1PUFF TWICE PER DAY
     Route: 055
  2. NASONEX [Concomitant]

REACTIONS (2)
  - NASAL POLYPS [None]
  - RASH ERYTHEMATOUS [None]
